FAERS Safety Report 15370655 (Version 1)
Quarter: 2018Q3

REPORT INFORMATION
  Report Type: Spontaneous
  Country: JP (occurrence: JP)
  Receive Date: 20180911
  Receipt Date: 20180911
  Transmission Date: 20181010
  Serious: Yes (Other)
  Sender: FDA-Public Use
  Company Number: JP-PFIZER INC-2018357149

PATIENT

DRUGS (1)
  1. LYRICA [Suspect]
     Active Substance: PREGABALIN
     Dosage: 23 TABLETS, UNK
     Route: 048
     Dates: start: 20180903

REACTIONS (6)
  - Mucosal ulceration [Unknown]
  - Respiratory tract oedema [Unknown]
  - Suicide attempt [Unknown]
  - Mucosal haemorrhage [Unknown]
  - Intentional overdose [Unknown]
  - Blood pressure decreased [Unknown]

NARRATIVE: CASE EVENT DATE: 20180903
